FAERS Safety Report 9749241 (Version 2)
Quarter: 2014Q2

REPORT INFORMATION
  Report Type: Spontaneous
  Country: US (occurrence: US)
  Receive Date: 20131212
  Receipt Date: 20140602
  Transmission Date: 20141212
  Serious: No
  Sender: FDA-Public Use
  Company Number: US-009507513-1311USA010505

PATIENT
  Age: 82 Year
  Sex: Male
  Weight: 62.59 kg

DRUGS (6)
  1. MIRALAX [Suspect]
     Indication: ABNORMAL FAECES
     Dosage: UNK, UNKNOWN
     Route: 048
     Dates: start: 201310
  2. MIRALAX [Suspect]
     Dosage: UNK, UNKNOWN
     Route: 048
     Dates: start: 201310
  3. METOPROLOL [Concomitant]
     Indication: BLOOD PRESSURE ABNORMAL
     Dosage: UNK, UNKNOWN
  4. ATORVASTATIN [Concomitant]
     Indication: BLOOD CHOLESTEROL ABNORMAL
     Dosage: UNK, UNKNOWN
  5. CITALOPRAM [Concomitant]
     Indication: ANXIETY
     Dosage: UNK, UNKNOWN
  6. ISOSORB (ISOSORBIDE MONONITRATE) [Concomitant]
     Indication: CARDIAC DISORDER

REACTIONS (3)
  - Defaecation urgency [Unknown]
  - Frequent bowel movements [Recovering/Resolving]
  - Underdose [Unknown]
